FAERS Safety Report 12568265 (Version 2)
Quarter: 2016Q4

REPORT INFORMATION
  Report Type: Spontaneous
  Country: JP (occurrence: JP)
  Receive Date: 20160718
  Receipt Date: 20161213
  Transmission Date: 20170207
  Serious: Yes (Other)
  Sender: FDA-Public Use
  Company Number: JP-ASTRAZENECA-2016SE77571

PATIENT
  Age: 18395 Day
  Sex: Male
  Weight: 60 kg

DRUGS (11)
  1. METHYLEPHEDRINE [Concomitant]
     Active Substance: METHYLEPHEDRINE
     Indication: ASTHMA
     Dosage: DOSE UNKNOWN, THREE TIMES A DAY
     Route: 048
     Dates: start: 20160620
  2. BALANCE [Concomitant]
     Active Substance: VITAMINS
     Indication: ASTHMA
     Dosage: DOSE UNKNOWN, THREE TIMES A DAY
     Route: 048
     Dates: start: 20160620
  3. MAOTO [Concomitant]
     Active Substance: HERBALS
     Indication: ASTHMA
     Dosage: DOSE UNKNOWN, THREE TIMES A DAY
     Route: 048
     Dates: start: 20160620
  4. PULMICORT TURBUHALER [Suspect]
     Active Substance: BUDESONIDE
     Indication: ASTHMA
     Route: 055
     Dates: start: 20160627, end: 20160627
  5. OXATOMIDE [Concomitant]
     Active Substance: OXATOMIDE
     Indication: ASTHMA
     Route: 048
     Dates: start: 20160620, end: 20160630
  6. SHOSEIRYUTO [Concomitant]
     Active Substance: EPHEDRA SINICA STEM\HERBALS
     Indication: ASTHMA
     Dosage: DOSE UNKNOWN, THREE TIMES A DAY
     Route: 048
     Dates: start: 20160620
  7. TULOBUTEROL [Concomitant]
     Active Substance: TULOBUTEROL
     Indication: ASTHMA
     Route: 048
     Dates: start: 20160620
  8. CYSTEN [Concomitant]
     Indication: ASTHMA
     Dosage: DOSE UNKNOWN, THREE TIMES A DAY
     Route: 048
     Dates: start: 20160620
  9. CHINESE TRADITIONAL MEDICINE NOS [Concomitant]
     Indication: ASTHMA
     Dosage: DOSE UNKNOWN, THREE TIMES A DAY
     Route: 048
     Dates: start: 20160620
  10. PRANLUKAST [Concomitant]
     Active Substance: PRANLUKAST
     Route: 048
     Dates: start: 20160620, end: 20160630
  11. THEOPHYLLINE [Concomitant]
     Active Substance: THEOPHYLLINE ANHYDROUS
     Dosage: DOSE UNKNOWN, EVERY DAY
     Route: 041

REACTIONS (1)
  - Urticaria [Recovered/Resolved]

NARRATIVE: CASE EVENT DATE: 20160627
